FAERS Safety Report 4648157-1 (Version None)
Quarter: 2005Q2

REPORT INFORMATION
  Report Type: 
  Country: None (occurrence: None)
  Receive Date: 20050331
  Receipt Date: 20050204
  Transmission Date: 20051028
  Serious: No
  Sender: FDA-Public Use
  Company Number: 05P-163-0289564-00

PATIENT
  Age: 65 Year
  Sex: Female
  Weight: 90.7194 kg

DRUGS (4)
  1. HUMIRA [Suspect]
     Indication: RHEUMATOID ARTHRITIS
     Dosage: 0.8 ML, 1 IN 2 WK, SUBCUTANEOUS
     Route: 058
     Dates: start: 20030314
  2. CALCIUM GLUCONATE [Concomitant]
  3. PARACETAMOL [Concomitant]
  4. BUCINDOLOL HYDROCHLORIDE) [Concomitant]

REACTIONS (1)
  - DRUG INEFFECTIVE [None]
